FAERS Safety Report 18344545 (Version 1)
Quarter: 2020Q4

REPORT INFORMATION
  Report Type: Spontaneous
  Country: US (occurrence: US)
  Receive Date: 20201005
  Receipt Date: 20201005
  Transmission Date: 20210114
  Serious: Yes (Life-Threatening, Hospitalization)
  Sender: FDA-Public Use
  Company Number: None

PATIENT
  Age: 57 Year
  Sex: Female
  Weight: 63.6 kg

DRUGS (2)
  1. RITUXAN [Suspect]
     Active Substance: RITUXIMAB
     Indication: IMMUNE THROMBOCYTOPENIA
     Route: 041
     Dates: start: 20200918, end: 20200918
  2. RITUXAN [Suspect]
     Active Substance: RITUXIMAB
     Indication: IMMUNE THROMBOCYTOPENIA
     Route: 041
     Dates: start: 20200918, end: 20200918

REACTIONS (9)
  - Pyrexia [None]
  - Headache [None]
  - Malaise [None]
  - Fatigue [None]
  - Arthralgia [None]
  - Myalgia [None]
  - Neck pain [None]
  - Nausea [None]
  - Serum sickness [None]

NARRATIVE: CASE EVENT DATE: 20200924
